FAERS Safety Report 5737887-6 (Version None)
Quarter: 2008Q2

REPORT INFORMATION
  Report Type: 
  Country: None (occurrence: None)
  Receive Date: 20080509
  Receipt Date: 20080425
  Transmission Date: 20081010
  Serious: Yes (Other)
  Sender: FDA-Public Use
  Company Number: 2008000572

PATIENT
  Age: 78 Year
  Sex: Female

DRUGS (8)
  1. TARCEVA [Suspect]
     Indication: LUNG ADENOCARCINOMA
     Dosage: (150 MG, QD), ORAL
     Route: 048
     Dates: start: 20080110
  2. LEVOCETIRIZINE (LEVOCETIRIZINE) [Suspect]
     Indication: PRURITUS
     Dosage: (1 DOSAGE FORMS, QD), ORAL
     Route: 048
     Dates: start: 20080213, end: 20080229
  3. INSULATARD NPH HUMAN [Concomitant]
  4. CORVASAL (MOLSIDOMNE) [Concomitant]
  5. METOPROLOL TARTRATE [Concomitant]
  6. GLYBURIDE [Concomitant]
  7. KARDEGIC (ACETYLSALICYLATE LYSINE) [Concomitant]
  8. NISIS (VALSARTAN) [Concomitant]

REACTIONS (6)
  - AGITATION [None]
  - CONFUSIONAL STATE [None]
  - DEPRESSED LEVEL OF CONSCIOUSNESS [None]
  - DRUG INTERACTION [None]
  - SELF-MEDICATION [None]
  - SOMNOLENCE [None]
